FAERS Safety Report 4803670-9 (Version None)
Quarter: 2005Q4

REPORT INFORMATION
  Report Type: 
  Country: None (occurrence: None)
  Receive Date: 20051014
  Receipt Date: 20050914
  Transmission Date: 20060501
  Serious: Yes (Hospitalization)
  Sender: FDA-Public Use
  Company Number: 2005RR-00848

PATIENT
  Age: 48 Year
  Sex: Male

DRUGS (7)
  1. DISPERSIBLE ASPIRIN TABLETS BP 75MG (ASPIRIN) [Suspect]
     Dosage: 75 MG, QD, ORAL
     Route: 048
     Dates: end: 20050822
  2. IBUPROFEN [Suspect]
     Dosage: 400 MG, Q4H, ORAL
     Route: 048
  3. DOXAZOSIN TABLET 4MG (DOXAZOSIN) [Concomitant]
  4. BEZAFIBRATE [Concomitant]
  5. SPIRONOLACTONE [Concomitant]
  6. ALLOPURINOL TABLETS BP 300MG (ALLOPURINOL) [Concomitant]
  7. IRBESARTAN AND HYDROCHLOROTHIAZIDE [Concomitant]

REACTIONS (2)
  - GASTRITIS [None]
  - GASTROINTESTINAL HAEMORRHAGE [None]
